FAERS Safety Report 8467322-9 (Version None)
Quarter: 2012Q2

REPORT INFORMATION
  Report Type: 
  Country: None (occurrence: None)
  Receive Date: 20120626
  Receipt Date: 20120614
  Transmission Date: 20120825
  Serious: Yes (Other)
  Sender: FDA-Public Use
  Company Number: IL-PERRIGO-12IL005198

PATIENT
  Age: 51 Year
  Sex: Male

DRUGS (2)
  1. EUTHYROX [Concomitant]
     Indication: HYPOTHYROIDISM
     Dosage: UNK
     Route: 048
  2. TESTOSTERONE [Suspect]
     Indication: BLOOD TESTOSTERONE DECREASED
     Dosage: 50 MG, QD
     Route: 061
     Dates: start: 20120201, end: 20120605

REACTIONS (2)
  - BLOOD TESTOSTERONE DECREASED [None]
  - SPERM CONCENTRATION ZERO [None]
